FAERS Safety Report 10364195 (Version 1)
Quarter: 2014Q3

REPORT INFORMATION
  Report Type: Spontaneous
  Country: US (occurrence: US)
  Receive Date: 20140806
  Receipt Date: 20140806
  Transmission Date: 20150326
  Serious: Yes (Life-Threatening, Hospitalization, Other)
  Sender: FDA-Public Use
  Company Number: US-GLENMARK PHARMACEUTICALS EUROPE LIMITED-2014GMK010691

PATIENT
  Age: 52 Year
  Sex: Female

DRUGS (2)
  1. CITALOPRAM HYDROBROMIDE. [Suspect]
     Active Substance: CITALOPRAM HYDROBROMIDE
     Indication: PRODUCT USED FOR UNKNOWN INDICATION
     Dosage: UNK
  2. METAXALONE. [Interacting]
     Active Substance: METAXALONE
     Indication: PRODUCT USED FOR UNKNOWN INDICATION
     Dosage: 800 MG, UNK
     Route: 048

REACTIONS (10)
  - Serotonin syndrome [Recovered/Resolved]
  - Hypertension [Recovered/Resolved]
  - Hyperhidrosis [Recovered/Resolved]
  - Hyperthermia [Recovered/Resolved]
  - Drug interaction [Recovered/Resolved]
  - Mental status changes [Recovered/Resolved]
  - Tachycardia [Recovered/Resolved]
  - Temperature intolerance [Recovered/Resolved]
  - Clonus [Recovered/Resolved]
  - Muscle rigidity [Recovered/Resolved]
